FAERS Safety Report 6079618-9 (Version None)
Quarter: 2009Q1

REPORT INFORMATION
  Report Type: 
  Country: None (occurrence: None)
  Receive Date: 20090217
  Receipt Date: 20090205
  Transmission Date: 20090719
  Serious: Yes (Hospitalization)
  Sender: FDA-Public Use
  Company Number: US-JNJFOC-20090201965

PATIENT
  Age: 84 Year
  Sex: Female
  Weight: 80.74 kg

DRUGS (4)
  1. MONISTAT 7 [Suspect]
     Route: 067
  2. MONISTAT 7 [Suspect]
     Indication: FUNGAL INFECTION
     Route: 067
  3. COZAAR [Concomitant]
  4. FELODIPINE [Concomitant]

REACTIONS (1)
  - VULVITIS [None]
